FAERS Safety Report 6524400-9 (Version None)
Quarter: 2010Q1

REPORT INFORMATION
  Report Type: 
  Country: None (occurrence: None)
  Receive Date: 20100101
  Receipt Date: 20091221
  Transmission Date: 20100710
  Serious: Yes (Hospitalization)
  Sender: FDA-Public Use
  Company Number: GB-RANBAXY-2007RR-09599

PATIENT

DRUGS (3)
  1. IBUPROFEN [Suspect]
     Indication: TOOTHACHE
     Dosage: 600 MG, TID
     Route: 048
  2. IBUPROFEN [Suspect]
     Dosage: 2.4 G, UNK
     Route: 048
  3. PARACETAMOL [Suspect]
     Indication: TOOTHACHE
     Dosage: 7 G, UNK
     Route: 048

REACTIONS (2)
  - ABSCESS [None]
  - ACCIDENTAL OVERDOSE [None]
